FAERS Safety Report 23941774 (Version 1)
Quarter: 2024Q2

REPORT INFORMATION
  Report Type: Spontaneous
  Country: GB (occurrence: GB)
  Receive Date: 20240605
  Receipt Date: 20240605
  Transmission Date: 20240716
  Serious: Yes (Other)
  Sender: FDA-Public Use
  Company Number: GB-002147023-NVSC2024GB113391

PATIENT
  Age: 56 Year
  Sex: Female

DRUGS (2)
  1. LUTATHERA [Suspect]
     Active Substance: LUTETIUM OXODOTREOTIDE LU-177
     Indication: Product used for unknown indication
     Dosage: 7400 MBQ (4 CYCLES APPROX EVERY 8 WEEKS)
     Route: 042
     Dates: start: 2021, end: 2021
  2. LANREOTIDE [Concomitant]
     Active Substance: LANREOTIDE
     Indication: Product used for unknown indication
     Dosage: 120 MG, Q4W
     Route: 065

REACTIONS (4)
  - Disease progression [Unknown]
  - Hepatic lesion [Unknown]
  - Anxiety [Unknown]
  - Pain [Unknown]
